FAERS Safety Report 8238813-0 (Version None)
Quarter: 2012Q1

REPORT INFORMATION
  Report Type: 
  Country: None (occurrence: None)
  Receive Date: 20120327
  Receipt Date: 20120313
  Transmission Date: 20120608
  Serious: Yes (Other)
  Sender: FDA-Public Use
  Company Number: IT-CELGENEUS-083-20785-12031491

PATIENT

DRUGS (6)
  1. THALIDOMIDE [Suspect]
     Indication: MULTIPLE MYELOMA
     Dosage: 100 MILLIGRAM
     Route: 048
     Dates: start: 20110715, end: 20120115
  2. SIMVASTATIN [Concomitant]
     Dosage: 20 MILLIGRAM
     Route: 048
  3. PERINDOPRIL [Concomitant]
     Dosage: 5 MILLIGRAM
     Route: 048
  4. OMEPRAZOLE [Concomitant]
     Dosage: 20 MILLIGRAM
     Route: 048
     Dates: start: 20110715
  5. ASPIRIN [Concomitant]
     Dosage: 100 MILLIGRAM
     Route: 048
  6. FENTANYL [Concomitant]
     Route: 062
     Dates: start: 20110715

REACTIONS (1)
  - HALLUCINATION [None]
